FAERS Safety Report 6710932-7 (Version None)
Quarter: 2010Q2

REPORT INFORMATION
  Report Type: 
  Country: None (occurrence: None)
  Receive Date: 20100505
  Receipt Date: 20100426
  Transmission Date: 20101027
  Serious: Yes (Hospitalization)
  Sender: FDA-Public Use
  Company Number: US-BIOGENIDEC-2010BI003846

PATIENT
  Age: 43 Year
  Sex: Female

DRUGS (6)
  1. AVONEX [Suspect]
     Indication: MULTIPLE SCLEROSIS
     Route: 030
     Dates: start: 20030801
  2. AVONEX [Suspect]
     Route: 030
  3. AVONEX [Suspect]
     Route: 030
  4. PROVIGIL [Concomitant]
     Indication: FATIGUE
     Route: 048
  5. STEROIDS (NOS) [Concomitant]
     Indication: SCOTOMA
  6. STEROIDS (NOS) [Concomitant]
     Route: 042

REACTIONS (9)
  - CENTRAL VENOUS CATHETERISATION [None]
  - COGNITIVE DISORDER [None]
  - DYSURIA [None]
  - HEADACHE [None]
  - MEMORY IMPAIRMENT [None]
  - PHOTOPSIA [None]
  - SPEECH DISORDER [None]
  - STAPHYLOCOCCAL INFECTION [None]
  - VISUAL IMPAIRMENT [None]
